FAERS Safety Report 22224523 (Version 1)
Quarter: 2023Q2

REPORT INFORMATION
  Report Type: Spontaneous
  Country: US (occurrence: None)
  Receive Date: 20230417
  Receipt Date: 20230417
  Transmission Date: 20230721
  Serious: Yes (Life-Threatening, Hospitalization)
  Sender: FDA-Public Use
  Company Number: None

PATIENT
  Age: 40 Year
  Sex: Female
  Weight: 47.25 kg

DRUGS (1)
  1. VENOFER [Suspect]
     Active Substance: IRON SUCROSE
     Indication: Iron deficiency anaemia
     Route: 042
     Dates: start: 20230413, end: 20230413

REACTIONS (9)
  - Anaphylactic reaction [None]
  - Infusion related reaction [None]
  - Rash [None]
  - Burning sensation [None]
  - Peripheral swelling [None]
  - Peripheral swelling [None]
  - Dyspnoea [None]
  - Throat tightness [None]
  - Blood pressure decreased [None]

NARRATIVE: CASE EVENT DATE: 20230413
